FAERS Safety Report 5056745-6 (Version None)
Quarter: 2006Q2

REPORT INFORMATION
  Report Type: 
  Country: None (occurrence: None)
  Receive Date: 20060619
  Receipt Date: 20050829
  Transmission Date: 20061013
  Serious: Yes (Hospitalization)
  Sender: FDA-Public Use
  Company Number: US-2005-017953

PATIENT
  Sex: Male
  Weight: 77.1 kg

DRUGS (3)
  1. FLUDARA [Suspect]
     Indication: B-CELL LYMPHOMA
  2. CYCLOPHOSPHAMIDE [Concomitant]
  3. RITUXIMAB [Concomitant]

REACTIONS (2)
  - BONE MARROW FAILURE [None]
  - INFECTION [None]
